FAERS Safety Report 15957255 (Version 1)
Quarter: 2019Q1

REPORT INFORMATION
  Report Type: Report from Study
  Country: CR (occurrence: CR)
  Receive Date: 20190213
  Receipt Date: 20190213
  Transmission Date: 20190417
  Serious: Yes (Other)
  Sender: FDA-Public Use
  Company Number: PHHY2018CR118660

PATIENT
  Age: 67 Year
  Sex: Female

DRUGS (2)
  1. SCAPHO [Suspect]
     Active Substance: SECUKINUMAB
     Dosage: 150 MG, UNK
     Route: 065
  2. SCAPHO [Suspect]
     Active Substance: SECUKINUMAB
     Indication: PRODUCT USED FOR UNKNOWN INDICATION
     Dosage: 300 MG, UNK
     Route: 065
     Dates: start: 20180925

REACTIONS (20)
  - Bursitis [Unknown]
  - Peripheral swelling [Unknown]
  - Rheumatoid arthritis [Unknown]
  - Extremity contracture [Not Recovered/Not Resolved]
  - Movement disorder [Not Recovered/Not Resolved]
  - Gait inability [Not Recovered/Not Resolved]
  - Joint swelling [Unknown]
  - Diarrhoea [Unknown]
  - Rash [Unknown]
  - Fungal infection [Unknown]
  - Swelling [Not Recovered/Not Resolved]
  - Bacterial infection [Unknown]
  - Oral fungal infection [Unknown]
  - Pain [Not Recovered/Not Resolved]
  - Malaise [Unknown]
  - Influenza [Unknown]
  - Dehydration [Unknown]
  - Vomiting [Unknown]
  - Disease progression [Unknown]
  - Drug ineffective [Unknown]
